FAERS Safety Report 12278252 (Version 1)
Quarter: 2016Q2

REPORT INFORMATION
  Report Type: Spontaneous
  Country: CA (occurrence: CA)
  Receive Date: 20160418
  Receipt Date: 20160418
  Transmission Date: 20160815
  Serious: Yes (Life-Threatening, Hospitalization)
  Sender: FDA-Public Use
  Company Number: CA-DEPOMED, INC.-CA-2016DEP009396

PATIENT

DRUGS (14)
  1. MORPHINE                           /00036302/ [Suspect]
     Active Substance: MORPHINE
     Dosage: 2 MG, UNK
     Route: 058
  2. FENTANYL. [Suspect]
     Active Substance: FENTANYL
     Indication: PRODUCT USED FOR UNKNOWN INDICATION
     Dosage: 0.01 MG, UNK
     Route: 037
  3. KETOROLAC [Suspect]
     Active Substance: KETOROLAC\KETOROLAC TROMETHAMINE
     Indication: PRODUCT USED FOR UNKNOWN INDICATION
     Dosage: 30 MG, UNK
     Route: 042
  4. MORPHINE                           /00036302/ [Suspect]
     Active Substance: MORPHINE
     Indication: PRODUCT USED FOR UNKNOWN INDICATION
     Dosage: 1 MG, UNK
     Route: 037
  5. DICLOFENAC POTASSIUM. [Suspect]
     Active Substance: DICLOFENAC POTASSIUM
     Indication: PRODUCT USED FOR UNKNOWN INDICATION
     Dosage: 50 MG, TID
     Route: 065
  6. MORPHINE                           /00036302/ [Suspect]
     Active Substance: MORPHINE
     Dosage: 1 MG, UNK
     Route: 037
  7. HYDROMORPHONE [Suspect]
     Active Substance: HYDROMORPHONE
     Indication: PRODUCT USED FOR UNKNOWN INDICATION
     Dosage: 2 MG, QD
     Route: 065
  8. ACETAMINOPHEN. [Suspect]
     Active Substance: ACETAMINOPHEN
     Indication: PRODUCT USED FOR UNKNOWN INDICATION
     Dosage: 4 DF, QD
     Route: 051
  9. BUPIVACAINE. [Suspect]
     Active Substance: BUPIVACAINE
     Indication: PRODUCT USED FOR UNKNOWN INDICATION
     Dosage: 0.75 %, UNK
     Route: 008
  10. MORPHINE                           /00036302/ [Suspect]
     Active Substance: MORPHINE
     Dosage: 1 MG, UNK
     Route: 042
  11. MORPHINE                           /00036302/ [Suspect]
     Active Substance: MORPHINE
     Dosage: 1 MG, UNK
     Route: 042
  12. NALOXONE [Suspect]
     Active Substance: NALOXONE
     Indication: PRODUCT USED FOR UNKNOWN INDICATION
     Dosage: 0.28 MG, UNK
     Route: 065
  13. MORPHINE                           /00036302/ [Suspect]
     Active Substance: MORPHINE
     Dosage: 2 MG, UNK
     Route: 065
  14. MORPHINE                           /00036302/ [Suspect]
     Active Substance: MORPHINE
     Dosage: 2 MG, UNK
     Route: 058

REACTIONS (6)
  - Maternal exposure during pregnancy [Unknown]
  - Blood pressure increased [Unknown]
  - Drug interaction [Unknown]
  - Respiratory depression [Unknown]
  - Respiratory rate decreased [Unknown]
  - Unresponsive to stimuli [Unknown]
